FAERS Safety Report 23090063 (Version 1)
Quarter: 2023Q4

REPORT INFORMATION
  Report Type: Spontaneous
  Country: CN (occurrence: CN)
  Receive Date: 20231020
  Receipt Date: 20231020
  Transmission Date: 20240110
  Serious: Yes (Other)
  Sender: FDA-Public Use
  Company Number: None

PATIENT
  Age: 42 Year
  Sex: Female
  Weight: 82 kg

DRUGS (4)
  1. CYCLOPHOSPHAMIDE [Suspect]
     Active Substance: CYCLOPHOSPHAMIDE
     Indication: Breast cancer female
     Dosage: 1.1 G, ONE TIME IN ONE DAY, DILUTED WITH 50ML 0.9% SODIUM CHLORIDE
     Route: 041
     Dates: start: 20230921, end: 20230921
  2. SODIUM CHLORIDE [Suspect]
     Active Substance: SODIUM CHLORIDE
     Indication: Medication dilution
     Dosage: 0.9% 50 ML, ONE TIME IN ONE DAY, USED TO DILUTE 1.1 G CYCLOPHOSPHAMIDE
     Route: 041
     Dates: start: 20230921, end: 20230921
  3. SODIUM CHLORIDE [Suspect]
     Active Substance: SODIUM CHLORIDE
     Dosage: 0.9% 250 ML, ONE TIME IN ONE DAY, USED TO DILUTE 140 MG DOCETAXEL
     Route: 041
     Dates: start: 20230921, end: 20230921
  4. DOCETAXEL [Suspect]
     Active Substance: DOCETAXEL
     Indication: Breast cancer female
     Dosage: 140 MG, ONE TIME IN ONE DAY, DILUTED WITH 250ML 0.9% SODIUM CHLORIDE
     Route: 041
     Dates: start: 20230921, end: 20230921

REACTIONS (1)
  - White blood cell count decreased [Recovered/Resolved]

NARRATIVE: CASE EVENT DATE: 20231004
